FAERS Safety Report 9399706 (Version 1)
Quarter: 2013Q3

REPORT INFORMATION
  Report Type: Report from Study
  Country: US (occurrence: US)
  Receive Date: 20130715
  Receipt Date: 20130715
  Transmission Date: 20140515
  Serious: Yes (Other)
  Sender: FDA-Public Use
  Company Number: US-ROCHE-1247021

PATIENT
  Sex: Male

DRUGS (9)
  1. AVASTIN [Suspect]
     Indication: DIABETIC RETINAL OEDEMA
     Route: 050
  2. AVASTIN [Suspect]
     Indication: DIABETIC RETINOPATHY
  3. ASPIRIN [Concomitant]
     Route: 065
  4. GABAPENTIN [Concomitant]
     Route: 065
  5. JANUMET [Concomitant]
     Route: 065
  6. LYRICA [Concomitant]
     Route: 065
  7. MURINE [Concomitant]
     Route: 065
  8. TORADOL [Concomitant]
     Route: 065
  9. PREDNISOLONE [Concomitant]
     Route: 065

REACTIONS (17)
  - Retinal tear [Unknown]
  - Vision blurred [Unknown]
  - Fatigue [Unknown]
  - Weight decreased [Unknown]
  - Sinusitis [Unknown]
  - Cough [Unknown]
  - Gait disturbance [Unknown]
  - Muscle spasms [Unknown]
  - Myalgia [Unknown]
  - Depression [Unknown]
  - Anxiety [Unknown]
  - Conjunctival haemorrhage [Unknown]
  - Lens disorder [Unknown]
  - Vitreous floaters [Unknown]
  - Vitreous haemorrhage [Unknown]
  - Cataract [Unknown]
  - Diabetic retinopathy [Unknown]
